FAERS Safety Report 16177563 (Version 2)
Quarter: 2019Q2

REPORT INFORMATION
  Report Type: Spontaneous
  Country: BR (occurrence: BR)
  Receive Date: 20190410
  Receipt Date: 20190423
  Transmission Date: 20190711
  Serious: Yes (Hospitalization, Other)
  Sender: FDA-Public Use
  Company Number: BR-UCBSA-2019015195

PATIENT
  Age: 4 Year
  Sex: Male
  Weight: 20 kg

DRUGS (3)
  1. FENOBARBITAL [Concomitant]
     Active Substance: PHENOBARBITAL
     Indication: PRODUCT USED FOR UNKNOWN INDICATION
     Dosage: 60 MG, 2X/DAY (BID)
     Route: 042
     Dates: start: 20190331
  2. HIDANTAL [Concomitant]
     Active Substance: PHENYTOIN SODIUM
     Indication: PRODUCT USED FOR UNKNOWN INDICATION
     Dosage: 60 MG, 2X/DAY (BID)
     Route: 042
     Dates: start: 20190331
  3. KEPPRA [Suspect]
     Active Substance: LEVETIRACETAM
     Indication: SEIZURE
     Dosage: 150 ML 100MG/ML, 2X/DAY (BID)
     Route: 048

REACTIONS (4)
  - Sepsis [Not Recovered/Not Resolved]
  - Seizure [Not Recovered/Not Resolved]
  - Acute kidney injury [Not Recovered/Not Resolved]
  - Encephalitis viral [Not Recovered/Not Resolved]

NARRATIVE: CASE EVENT DATE: 20190330
